FAERS Safety Report 23733375 (Version 1)
Quarter: 2024Q2

REPORT INFORMATION
  Report Type: Spontaneous
  Country: US (occurrence: US)
  Receive Date: 20240411
  Receipt Date: 20240411
  Transmission Date: 20240715
  Serious: Yes (Life-Threatening, Hospitalization)
  Sender: FDA-Public Use
  Company Number: US-MYLANLABS-2024M1031885

PATIENT
  Age: 53 Year
  Sex: Male

DRUGS (1)
  1. DILTIAZEM [Suspect]
     Active Substance: DILTIAZEM
     Indication: Atrial fibrillation
     Dosage: 30 MILLIGRAM,BOLUS INFUSION
     Route: 065

REACTIONS (2)
  - Cardiogenic shock [Recovering/Resolving]
  - Off label use [Unknown]
